FAERS Safety Report 7095441 (Version 24)
Quarter: 2013Q4

REPORT INFORMATION
  Report Type: Report from Study
  Country: CA (occurrence: CA)
  Receive Date: 20090825
  Receipt Date: 20131125
  Transmission Date: 20140711
  Serious: Yes (Hospitalization, Other)
  Sender: FDA-Public Use
  Company Number: PHHY2009CA21059

PATIENT
  Age: 68 Year
  Sex: Female

DRUGS (7)
  1. SANDOSTATIN LAR [Suspect]
     Indication: CARCINOID TUMOUR
     Dosage: 30 MG, EVERY FOUR WEEKS
     Route: 030
     Dates: start: 20080401
  2. SANDOSTATIN LAR [Suspect]
     Dosage: 50 MG, EVERY 4 WEEKS
     Route: 030
  3. SANDOSTATIN LAR [Suspect]
     Dosage: 60 MG, FOR 1 PRE-SURGERY WEEK
     Route: 030
     Dates: start: 20130603
  4. SANDOSTATIN LAR [Suspect]
     Dosage: 60 MG, ONCE
     Route: 030
  5. SANDOSTATIN LAR [Suspect]
     Dosage: 50 MG, EVERY 4 WEEKS
     Route: 030
  6. DILAUDID [Concomitant]
     Indication: PAIN
     Dosage: UNK UKN, UNK
  7. TRAMACET [Concomitant]
     Dosage: UNK UKN, UNK

REACTIONS (31)
  - Blood lactic acid increased [Unknown]
  - Confusional state [Unknown]
  - Disorientation [Unknown]
  - Dehydration [Unknown]
  - Nausea [Recovering/Resolving]
  - Panic attack [Unknown]
  - Emotional distress [Unknown]
  - Restlessness [Unknown]
  - Liver disorder [Unknown]
  - Malignant neoplasm progression [Unknown]
  - Diarrhoea [Not Recovered/Not Resolved]
  - Vomiting [Recovering/Resolving]
  - Haemorrhoids [Unknown]
  - Weight decreased [Unknown]
  - Perineal pain [Unknown]
  - Burning sensation [Unknown]
  - Flushing [Unknown]
  - Feeling hot [Unknown]
  - Pyrexia [Unknown]
  - Chills [Unknown]
  - Skin irritation [Unknown]
  - Tearfulness [Unknown]
  - Feeling abnormal [Unknown]
  - Limb discomfort [Unknown]
  - Gait disturbance [Unknown]
  - Blood pressure increased [Unknown]
  - Anxiety [Unknown]
  - Blood thyroid stimulating hormone increased [Unknown]
  - Dyspnoea [Unknown]
  - Flatulence [Unknown]
  - Constipation [Unknown]
